FAERS Safety Report 8589850-8 (Version None)
Quarter: 2012Q3

REPORT INFORMATION
  Report Type: 
  Country: None (occurrence: None)
  Receive Date: 20120813
  Receipt Date: 20120806
  Transmission Date: 20120928
  Serious: Yes (Other)
  Sender: FDA-Public Use
  Company Number: US-ROCHE-1098077

PATIENT

DRUGS (1)
  1. BONIVA [Suspect]
     Indication: PRODUCT USED FOR UNKNOWN INDICATION
     Dosage: BONIVA 150 MG MONTHLY (FOR MANY YEARS)
     Route: 048
     Dates: end: 20120627

REACTIONS (2)
  - ENDODONTIC PROCEDURE [None]
  - ECZEMA [None]
